FAERS Safety Report 4461076-9 (Version None)
Quarter: 2004Q3

REPORT INFORMATION
  Report Type: 
  Country: None (occurrence: None)
  Receive Date: 20040923
  Receipt Date: 20040907
  Transmission Date: 20050211
  Serious: Yes (Hospitalization)
  Sender: FDA-Public Use
  Company Number: 204381

PATIENT
  Age: 58 Year
  Sex: Female
  Weight: 56.6996 kg

DRUGS (14)
  1. AVONEX [Suspect]
     Indication: MULTIPLE SCLEROSIS
     Dosage: 30 MCG QW IM
     Route: 030
     Dates: start: 19980101, end: 20030801
  2. AVONEX [Suspect]
     Indication: MULTIPLE SCLEROSIS
     Dosage: 30 MCG QW IM
     Route: 030
     Dates: start: 20030801
  3. ATENOLOL [Concomitant]
  4. METFORMIN HCL [Concomitant]
  5. LIPITOR [Concomitant]
  6. METOCLOPRAMIDE [Concomitant]
  7. PROVIGIL [Concomitant]
  8. MECLIZINE [Concomitant]
  9. DIAZEPAM [Concomitant]
  10. NEURONTIN [Concomitant]
  11. MULTIVITAMINS AND MINERAL SUPPLEMENT [Concomitant]
  12. VITAMIN D [Concomitant]
  13. BACTRIM [Concomitant]
  14. ASPIRIN [Concomitant]

REACTIONS (7)
  - AMNESIA [None]
  - DIFFICULTY IN WALKING [None]
  - FALL [None]
  - MUSCLE SPASMS [None]
  - MUSCULAR WEAKNESS [None]
  - OSTEOPOROSIS [None]
  - SKIN LACERATION [None]
